FAERS Safety Report 5038565-1 (Version None)
Quarter: 2006Q2

REPORT INFORMATION
  Report Type: 
  Country: None (occurrence: None)
  Receive Date: 20060629
  Receipt Date: 20060620
  Transmission Date: 20061013
  Serious: Yes (Hospitalization)
  Sender: FDA-Public Use
  Company Number: PHRM2006FR01881

PATIENT
  Age: 24 Year
  Sex: Female

DRUGS (1)
  1. PARLODEL [Suspect]
     Route: 048
     Dates: start: 20060424, end: 20060426

REACTIONS (5)
  - CEREBRAL ARTERITIS [None]
  - GRAND MAL CONVULSION [None]
  - HEADACHE [None]
  - NUCLEAR MAGNETIC RESONANCE IMAGING BRAIN ABNORMAL [None]
  - ULTRASOUND SKULL ABNORMAL [None]
